FAERS Safety Report 18507993 (Version 2)
Quarter: 2020Q4

REPORT INFORMATION
  Report Type: Report from Study
  Country: US (occurrence: US)
  Receive Date: 20201116
  Receipt Date: 20201214
  Transmission Date: 20210114
  Serious: Yes (Death, Other)
  Sender: FDA-Public Use
  Company Number: US-OTSUKA-2020_025309

PATIENT
  Age: 78 Year
  Sex: Male

DRUGS (1)
  1. ASTX727 [Suspect]
     Active Substance: CEDAZURIDINE\DECITABINE
     Indication: MALIGNANT NEOPLASM OF AMPULLA OF VATER
     Dosage: 135MG (35 MG DECITABINE AND 100 MG CEDAZURIDINE), QD Q 1-5 DAYS EVERY 28 DAY CYCLE
     Route: 065
     Dates: start: 20200924

REACTIONS (9)
  - Product use in unapproved indication [Unknown]
  - Death [Fatal]
  - Decreased appetite [Unknown]
  - Transfusion [Unknown]
  - Weight decreased [Unknown]
  - Pyrexia [Unknown]
  - Fatigue [Unknown]
  - Platelet transfusion [Unknown]
  - Ulcer [Unknown]

NARRATIVE: CASE EVENT DATE: 20201110
